FAERS Safety Report 4872075-7 (Version None)
Quarter: 2006Q1

REPORT INFORMATION
  Report Type: 
  Country: None (occurrence: None)
  Receive Date: 20060104
  Receipt Date: 20051230
  Transmission Date: 20060701
  Serious: Yes (Other)
  Sender: FDA-Public Use
  Company Number: PHNU2005DE04293

PATIENT
  Sex: Female

DRUGS (2)
  1. ZOMETA [Suspect]
     Indication: METASTASES TO BONE
     Dosage: 4 MG, QMO
     Dates: start: 20040101
  2. CHEMOTHERAPEUTICS,OTHER [Suspect]
     Indication: BREAST CANCER FEMALE
     Route: 065

REACTIONS (4)
  - ANAEMIA [None]
  - C-REACTIVE PROTEIN INCREASED [None]
  - OSTEONECROSIS [None]
  - PAIN [None]
